FAERS Safety Report 5967970-1 (Version None)
Quarter: 2008Q4

REPORT INFORMATION
  Report Type: 
  Country: None (occurrence: None)
  Receive Date: 20081121
  Receipt Date: 20081113
  Transmission Date: 20090506
  Serious: Yes (Life-Threatening, Hospitalization)
  Sender: FDA-Public Use
  Company Number: 2008JP003380

PATIENT
  Age: 59 Year
  Sex: Male
  Weight: 67.6 kg

DRUGS (13)
  1. FUNGUARD(MICAFUNGIN INJECTION) [Suspect]
     Indication: INFECTION PROPHYLAXIS
     Dosage: 50 MG, UID/QD, IV DRIP, 150 MG, UID/QD, IV DRIP, 50 MG, UID/QD, IV DRIP
     Route: 041
     Dates: start: 20080218, end: 20080304
  2. FUNGUARD(MICAFUNGIN INJECTION) [Suspect]
     Indication: INFECTION PROPHYLAXIS
     Dosage: 50 MG, UID/QD, IV DRIP, 150 MG, UID/QD, IV DRIP, 50 MG, UID/QD, IV DRIP
     Route: 041
     Dates: start: 20080305, end: 20080311
  3. FUNGUARD(MICAFUNGIN INJECTION) [Suspect]
     Indication: INFECTION PROPHYLAXIS
     Dosage: 50 MG, UID/QD, IV DRIP, 150 MG, UID/QD, IV DRIP, 50 MG, UID/QD, IV DRIP
     Route: 041
     Dates: start: 20080312, end: 20080316
  4. CYCLOPHOSPHAMIDE [Suspect]
     Indication: BONE MARROW CONDITIONING REGIMEN
     Dosage: 4000 MG, D
     Dates: start: 20080223, end: 20080224
  5. CONTOMIN(CHLORPROMAZINE) HYDROCHLORIDE) INJECTION [Suspect]
     Indication: NAUSEA
     Dosage: 10 MG, D
     Dates: start: 20080224
  6. MAXIPIME [Suspect]
     Indication: FEBRILE NEUTROPENIA
     Dosage: 2 G, D
     Dates: start: 20080304, end: 20080314
  7. EXACIN(ISEPAMICIN SULFATE) INJECTION [Suspect]
     Indication: FEBRILE NEUTROPENIA
     Dosage: 400 MG, D
     Dates: start: 20080304, end: 20080314
  8. METHOTREXATE [Concomitant]
  9. PROGRAF [Concomitant]
  10. ZOVIRAX [Concomitant]
  11. LENDORM [Concomitant]
  12. BIOFERMIN R STREPTOCOCCUS FAECALIS) [Concomitant]
  13. LOPERAMIDE HCL [Concomitant]

REACTIONS (7)
  - ALANINE AMINOTRANSFERASE INCREASED [None]
  - ALLOGENIC BONE MARROW TRANSPLANTATION THERAPY [None]
  - BLOOD ALKALINE PHOSPHATASE INCREASED [None]
  - ENTEROCOLITIS [None]
  - FEBRILE NEUTROPENIA [None]
  - NAUSEA [None]
  - STOMATITIS [None]
